FAERS Safety Report 10539965 (Version 3)
Quarter: 2014Q4

REPORT INFORMATION
  Report Type: Spontaneous
  Country: IT (occurrence: IT)
  Receive Date: 20141024
  Receipt Date: 20141030
  Transmission Date: 20150529
  Serious: Yes (Hospitalization)
  Sender: FDA-Public Use
  Company Number: IT-009507513-1410ITA010017

PATIENT
  Age: 72 Year
  Sex: Female
  Weight: 81 kg

DRUGS (14)
  1. CARBOLITHIUM [Suspect]
     Active Substance: LITHIUM CARBONATE
     Indication: BIPOLAR DISORDER
     Dosage: TOTAL DAILY DOSE 600MG
     Route: 048
     Dates: start: 20120101, end: 20140813
  2. CARBOLITHIUM [Suspect]
     Active Substance: LITHIUM CARBONATE
     Dosage: 600 MG,DAILY
     Route: 048
     Dates: start: 20140819
  3. DICLOFENAC [Suspect]
     Active Substance: DICLOFENAC
     Indication: POLYMYALGIA RHEUMATICA
     Dosage: TOTAL DAILY DOSE 100MG
     Route: 048
     Dates: start: 20140808, end: 20140811
  4. ASPIRIN. [Concomitant]
     Active Substance: ASPIRIN
     Indication: ISCHAEMIC CARDIOMYOPATHY
     Dosage: 100 MG
     Route: 048
  5. TARGIN [Concomitant]
     Active Substance: NALOXONE HYDROCHLORIDE\OXYCODONE HYDROCHLORIDE
     Indication: POLYMYALGIA RHEUMATICA
     Dosage: 3 POSOLOGICAL UNITS FOR 3 DAYS
     Route: 048
  6. CATAPRESAN [Concomitant]
     Active Substance: CLONIDINE
     Indication: HYPERTENSION
     Dosage: 2 POSOLOGICAL UNITS
     Route: 048
  7. SEACOR [Concomitant]
     Active Substance: OMEGA-3 FATTY ACIDS
     Indication: DYSLIPIDAEMIA
     Dosage: 3G
     Route: 048
  8. METFORALMILLE [Concomitant]
     Active Substance: METFORMIN HYDROCHLORIDE
     Indication: TYPE 2 DIABETES MELLITUS
     Dosage: 1000 MG
     Route: 048
  9. MIRTAZAPINE. [Suspect]
     Active Substance: MIRTAZAPINE
     Indication: BIPOLAR DISORDER
     Dosage: TOTAL DAILLY DOSE 15MG
     Route: 048
     Dates: start: 20140809, end: 20140819
  10. GLIBOMET [Concomitant]
     Active Substance: GLYBURIDE\METFORMIN HYDROCHLORIDE
     Indication: TYPE 2 DIABETES MELLITUS
     Dosage: STRENGTH 400 MG + 5MG, 2 POSOLOGICAL UNITS
     Route: 048
  11. CYMBALTA [Suspect]
     Active Substance: DULOXETINE HYDROCHLORIDE
     Indication: BIPOLAR DISORDER
     Dosage: TOTAL DAILY DOSE 60MG
     Route: 048
     Dates: start: 20140809, end: 20140811
  12. LACIREX [Concomitant]
     Indication: HYPERTENSION
     Dosage: 1 POSOLOGICAL UNIT
     Route: 048
  13. DIURESIX (TORSEMIDE) [Concomitant]
     Indication: TYPE 2 DIABETES MELLITUS
     Dosage: 10 MG
     Route: 048
     Dates: start: 20140812
  14. FULCROSUPRA [Concomitant]
     Active Substance: FENOFIBRATE
     Indication: DYSLIPIDAEMIA
     Dosage: 145 MG
     Route: 048

REACTIONS (6)
  - Hyperhidrosis [Recovered/Resolved]
  - Asthenia [Recovered/Resolved]
  - Palpitations [Recovered/Resolved]
  - Abdominal pain upper [Recovered/Resolved]
  - Muscle spasms [Recovered/Resolved]
  - Vomiting [Recovered/Resolved]

NARRATIVE: CASE EVENT DATE: 20140810
